FAERS Safety Report 12565700 (Version 1)
Quarter: 2020Q3

REPORT INFORMATION
  Report Type: Report from Study
  Country: CA (occurrence: CA)
  Receive Date: 20160718
  Receipt Date: 20160718
  Transmission Date: 20201104
  Serious: Yes (Hospitalization)
  Sender: FDA-Public Use
  Company Number: CA-PFIZER INC-2016342251

PATIENT
  Age: 65 Year
  Sex: Female

DRUGS (4)
  1. CISPLATIN. [Suspect]
     Active Substance: CISPLATIN
     Indication: NON-SMALL CELL LUNG CANCER
     Dosage: 70 MG/M2, CYCLIC (DAY 1 Q 21 DAYS)
     Route: 065
  2. GEMCITABINE HYDROCHLORIDE. [Suspect]
     Active Substance: GEMCITABINE HYDROCHLORIDE
     Indication: NON-SMALL CELL LUNG CANCER
     Dosage: 1250 MG/M2, CYCLIC (DAY 1)
     Route: 042
     Dates: start: 20160426, end: 20160615
  3. MEDI4736 [Suspect]
     Active Substance: DURVALUMAB
     Indication: NON-SMALL CELL LUNG CANCER
     Dosage: 15 MG/KG, CYCLIC (DAY 1 EVERY 21 DAYS )
     Route: 042
     Dates: start: 20160426, end: 20160427
  4. TREMELIMUMAB. [Suspect]
     Active Substance: TREMELIMUMAB
     Indication: NON-SMALL CELL LUNG CANCER
     Dosage: 3 MG/KG, CYCLIC (DAY 1 )
     Route: 042
     Dates: start: 20160426, end: 20160427

REACTIONS (1)
  - Embolism [Unknown]

NARRATIVE: CASE EVENT DATE: 20160704
